FAERS Safety Report 9525386 (Version 1)
Quarter: 2013Q1

REPORT INFORMATION
  Report Type: Spontaneous
  Country: US (occurrence: None)
  Receive Date: 20130314
  Receipt Date: 20130314
  Transmission Date: 20140127
  Serious: No
  Sender: FDA-Public Use
  Company Number: 1212USA008152

PATIENT
  Age: 58 Year
  Sex: Male

DRUGS (7)
  1. VICTRELIS [Suspect]
     Indication: HEPATITIS C
     Route: 048
     Dates: start: 20121025
  2. PEGASYS (PEGINTERFERON ALFA-2A) [Suspect]
  3. RIBASPHERE (RIBAVIRIN) [Suspect]
  4. LOSARTAN POTASSIUM (LOSARTAN POTASSIUM) [Concomitant]
  5. METOPROLOL (METOPROLOL) [Concomitant]
  6. HYDROCHLOROTHIAZIDE (HYDROCHLOROTHIAZIDE) [Concomitant]
  7. RANITIDINE (RANITIDINE) [Concomitant]

REACTIONS (1)
  - Rash [None]
